FAERS Safety Report 9891758 (Version 4)
Quarter: 2014Q2

REPORT INFORMATION
  Report Type: Spontaneous
  Country: US (occurrence: US)
  Receive Date: 20140212
  Receipt Date: 20140401
  Transmission Date: 20141212
  Serious: No
  Sender: FDA-Public Use
  Company Number: US-ROXANE LABORATORIES, INC.-2014-RO-00179RO

PATIENT
  Age: 47 Year
  Sex: Female

DRUGS (2)
  1. BUTORPHANOL [Suspect]
     Indication: MIGRAINE
     Route: 045
  2. ZOFRAN [Concomitant]
     Indication: NAUSEA
     Route: 065

REACTIONS (8)
  - Drug ineffective [Not Recovered/Not Resolved]
  - Nausea [Not Recovered/Not Resolved]
  - Vomiting [Not Recovered/Not Resolved]
  - Diarrhoea [Not Recovered/Not Resolved]
  - Chills [Not Recovered/Not Resolved]
  - Pyrexia [Not Recovered/Not Resolved]
  - Dehydration [Unknown]
  - Product quality issue [Unknown]
